FAERS Safety Report 18410862 (Version 1)
Quarter: 2020Q4

REPORT INFORMATION
  Report Type: Spontaneous
  Country: IT (occurrence: IT)
  Receive Date: 20201021
  Receipt Date: 20201021
  Transmission Date: 20210114
  Serious: Yes (Other)
  Sender: FDA-Public Use
  Company Number: IT-AMGEN-ITASP2020165548

PATIENT

DRUGS (5)
  1. RISEDRONATE [Concomitant]
     Active Substance: RISEDRONATE SODIUM
     Indication: HORMONE RECEPTOR POSITIVE BREAST CANCER
  2. XGEVA [Suspect]
     Active Substance: DENOSUMAB
     Indication: HORMONE RECEPTOR POSITIVE BREAST CANCER
     Dosage: UNK
     Route: 065
  3. CALCIUM [Concomitant]
     Active Substance: CALCIUM
  4. VITAMIN D [COLECALCIFEROL] [Concomitant]
     Active Substance: CHOLECALCIFEROL
  5. ALENDRONATE [Concomitant]
     Active Substance: ALENDRONATE SODIUM
     Indication: HORMONE RECEPTOR POSITIVE BREAST CANCER

REACTIONS (1)
  - Pathological fracture [Unknown]
